FAERS Safety Report 20737057 (Version 2)
Quarter: 2022Q2

REPORT INFORMATION
  Report Type: Spontaneous
  Country: US (occurrence: US)
  Receive Date: 20220421
  Receipt Date: 20220621
  Transmission Date: 20220721
  Serious: No
  Sender: FDA-Public Use
  Company Number: US-PFIZER INC-202200420243

PATIENT
  Age: 60 Year
  Sex: Female

DRUGS (1)
  1. IBRANCE [Suspect]
     Active Substance: PALBOCICLIB
     Dosage: UNK

REACTIONS (10)
  - Fatigue [Unknown]
  - Blood glucose abnormal [Unknown]
  - Stomatitis [Unknown]
  - Mouth ulceration [Unknown]
  - Headache [Unknown]
  - Dizziness [Unknown]
  - Disturbance in attention [Unknown]
  - Full blood count abnormal [Unknown]
  - White blood cell count abnormal [Unknown]
  - Hunger [Unknown]
